FAERS Safety Report 7943184-0 (Version None)
Quarter: 2011Q4

REPORT INFORMATION
  Report Type: 
  Country: None (occurrence: None)
  Receive Date: 20111128
  Receipt Date: 20111116
  Transmission Date: 20120403
  Serious: Yes (Other)
  Sender: FDA-Public Use
  Company Number: PHHY2011JP101854

PATIENT
  Sex: Female

DRUGS (2)
  1. ANTIHYPERTENSIVE DRUGS [Concomitant]
  2. VOLTAREN [Suspect]
     Indication: SCIATICA
     Dosage: 25 MG, DAILY
     Route: 054

REACTIONS (3)
  - FALL [None]
  - BACK PAIN [None]
  - BACK INJURY [None]
